FAERS Safety Report 5129128-8 (Version None)
Quarter: 2006Q4

REPORT INFORMATION
  Report Type: 
  Country: None (occurrence: None)
  Receive Date: 20061011
  Receipt Date: 20060927
  Transmission Date: 20070319
  Serious: Yes (Hospitalization)
  Sender: FDA-Public Use
  Company Number: FR200609003881

PATIENT
  Age: 1 Year
  Sex: 0
  Weight: 3.4 kg

DRUGS (5)
  1. ZYPREXA [Suspect]
     Dosage: TRANSPLACENTAL
     Route: 064
     Dates: end: 20060704
  2. NOZINAN (LEVOMEPROMAZINE) [Concomitant]
  3. OXAZEPAM [Concomitant]
  4. ZOLPIDEM TARTRATE [Concomitant]
  5. PAROXETINE HYDROCHLORIDE [Concomitant]

REACTIONS (7)
  - AGITATION NEONATAL [None]
  - BRADYCARDIA NEONATAL [None]
  - CAESAREAN SECTION [None]
  - DRUG EXPOSURE DURING PREGNANCY [None]
  - HYPOVENTILATION NEONATAL [None]
  - NEONATAL RESPIRATORY DISTRESS SYNDROME [None]
  - SOMNOLENCE NEONATAL [None]
